FAERS Safety Report 4539890-0 (Version None)
Quarter: 2004Q4

REPORT INFORMATION
  Report Type: 
  Country: None (occurrence: None)
  Receive Date: 20041223
  Receipt Date: 20041210
  Transmission Date: 20050328
  Serious: Yes (Hospitalization)
  Sender: FDA-Public Use
  Company Number: 2004114926

PATIENT
  Age: 34 Year
  Sex: Female

DRUGS (3)
  1. NAFARELIN ACETATE SPRAY (NAFARELIN ACETATE) [Suspect]
     Indication: ASSISTED FERTILISATION
     Dosage: 400 MCG (200 MCG, BID), NASAL
     Route: 045
     Dates: start: 20040908, end: 20041019
  2. FOLLITRIPIN ALFA (FOLLITROPIN ALFA) [Suspect]
     Indication: ASSISTED FERTILISATION
     Dosage: SEE IMAGE
     Route: 058
     Dates: start: 20041007, end: 20041014
  3. FOLLITRIPIN ALFA (FOLLITROPIN ALFA) [Suspect]
     Indication: ASSISTED FERTILISATION
     Dosage: SEE IMAGE
     Route: 058
     Dates: start: 20041015, end: 20041017

REACTIONS (6)
  - ABDOMINAL DISTENSION [None]
  - ABDOMINAL PAIN [None]
  - ASCITES [None]
  - NAUSEA [None]
  - OVARIAN ENLARGEMENT [None]
  - OVARIAN HYPERSTIMULATION SYNDROME [None]
